FAERS Safety Report 9076424 (Version 1)
Quarter: 2013Q1

REPORT INFORMATION
  Report Type: Report from Study
  Country: US (occurrence: US)
  Receive Date: 20130129
  Receipt Date: 20130129
  Transmission Date: 20140127
  Serious: No
  Sender: FDA-Public Use
  Company Number: US-ABBOTT-12P-163-0947947-00

PATIENT
  Sex: Female

DRUGS (2)
  1. HUMIRA 40 MG/0.8 ML PEN [Suspect]
     Indication: RHEUMATOID ARTHRITIS
     Dosage: EVERY TEN DAYS
     Dates: start: 20101030
  2. FOSINOPRIL [Concomitant]
     Indication: PRODUCT USED FOR UNKNOWN INDICATION

REACTIONS (7)
  - Night sweats [Unknown]
  - Muscular weakness [Unknown]
  - Muscular weakness [Unknown]
  - Productive cough [Unknown]
  - Infection [Unknown]
  - Arthralgia [Unknown]
  - Drug ineffective [Unknown]
